FAERS Safety Report 14056710 (Version 1)
Quarter: 2017Q4

REPORT INFORMATION
  Report Type: Spontaneous
  Country: US (occurrence: US)
  Receive Date: 20171006
  Receipt Date: 20171006
  Transmission Date: 20180321
  Serious: Yes (Other)
  Sender: FDA-Public Use
  Company Number: US-AMGEN-USASP2017149605

PATIENT
  Age: 75 Year
  Sex: Female

DRUGS (4)
  1. ENBREL [Suspect]
     Active Substance: ETANERCEPT
     Dosage: 25 MG, QWK
     Route: 065
  2. ENBREL [Suspect]
     Active Substance: ETANERCEPT
     Dosage: 25 MG, 2 TIMES/WK
     Route: 065
     Dates: start: 201709
  3. ENBREL [Suspect]
     Active Substance: ETANERCEPT
     Dosage: 25 MG, AS NECESSARY
     Route: 065
     Dates: end: 201709
  4. ENBREL [Suspect]
     Active Substance: ETANERCEPT
     Indication: RHEUMATOID ARTHRITIS
     Dosage: 25 MG, 2 TIMES/WK
     Route: 065

REACTIONS (2)
  - Rheumatoid arthritis [Unknown]
  - Off label use [Unknown]

NARRATIVE: CASE EVENT DATE: 201709
